FAERS Safety Report 5125479-1 (Version None)
Quarter: 2006Q3

REPORT INFORMATION
  Report Type: 
  Country: None (occurrence: None)
  Receive Date: 20060822
  Receipt Date: 20060622
  Transmission Date: 20061208
  Serious: No
  Sender: FDA-Public Use
  Company Number: PHEH2006US08756

PATIENT
  Age: 72 Year
  Sex: Female

DRUGS (1)
  1. ENABLEX [Suspect]

REACTIONS (5)
  - BACK PAIN [None]
  - DIZZINESS [None]
  - DYSPNOEA [None]
  - NASAL CONGESTION [None]
  - VISION BLURRED [None]
